FAERS Safety Report 18868432 (Version 2)
Quarter: 2021Q1

REPORT INFORMATION
  Report Type: Report from Study
  Country: US (occurrence: US)
  Receive Date: 20210209
  Receipt Date: 20210222
  Transmission Date: 20210420
  Serious: Yes (Other)
  Sender: FDA-Public Use
  Company Number: US-EMD SERONO-E2B_80088233

PATIENT
  Age: 43 Year
  Sex: Female

DRUGS (4)
  1. LIDOCAINE. [Concomitant]
     Active Substance: LIDOCAINE
     Indication: PREMEDICATION
  2. REBIF [Suspect]
     Active Substance: INTERFERON BETA-1A
     Route: 058
     Dates: start: 20171107
  3. HYDROCORTISONE. [Concomitant]
     Active Substance: HYDROCORTISONE
     Indication: PRODUCT USED FOR UNKNOWN INDICATION
  4. REBIF [Suspect]
     Active Substance: INTERFERON BETA-1A
     Indication: RELAPSING-REMITTING MULTIPLE SCLEROSIS
     Dosage: REBIDOSE
     Route: 058
     Dates: start: 20160728

REACTIONS (29)
  - Stress [Unknown]
  - Injection site erythema [Not Recovered/Not Resolved]
  - Pain [Not Recovered/Not Resolved]
  - Low density lipoprotein increased [Recovered/Resolved]
  - Hypothyroidism [Recovering/Resolving]
  - Injection site discolouration [Unknown]
  - Multiple sclerosis [Not Recovered/Not Resolved]
  - Swelling [Not Recovered/Not Resolved]
  - Tooth infection [Unknown]
  - Temperature intolerance [Not Recovered/Not Resolved]
  - Neck pain [Not Recovered/Not Resolved]
  - Lack of injection site rotation [Not Recovered/Not Resolved]
  - Influenza like illness [Recovering/Resolving]
  - Injection site indentation [Unknown]
  - Abdominal distension [Unknown]
  - Injection site bruising [Not Recovered/Not Resolved]
  - C-reactive protein increased [Unknown]
  - Injection site dryness [Unknown]
  - Injection site inflammation [Unknown]
  - Hypertension [Recovering/Resolving]
  - Blood cholesterol increased [Not Recovered/Not Resolved]
  - Anxiety [Not Recovered/Not Resolved]
  - Injection site pain [Not Recovered/Not Resolved]
  - Injection site mass [Not Recovered/Not Resolved]
  - Injection site pruritus [Not Recovered/Not Resolved]
  - Injection site exfoliation [Unknown]
  - Cellulitis [Not Recovered/Not Resolved]
  - Urinary tract infection [Recovered/Resolved]
  - Product supply issue [Unknown]

NARRATIVE: CASE EVENT DATE: 20171002
